FAERS Safety Report 6793140-3 (Version None)
Quarter: 2010Q2

REPORT INFORMATION
  Report Type: 
  Country: None (occurrence: None)
  Receive Date: 20100624
  Receipt Date: 20090706
  Transmission Date: 20101027
  Serious: Yes (Other)
  Sender: FDA-Public Use
  Company Number: US-MYLANLABS-2009S1009786

PATIENT
  Age: 61 Year
  Sex: Male

DRUGS (16)
  1. CLOZAPINE [Suspect]
     Indication: SCHIZOAFFECTIVE DISORDER
     Route: 048
     Dates: start: 20090220, end: 20090520
  2. CLOZAPINE [Suspect]
     Indication: PSYCHOTIC BEHAVIOUR
     Route: 048
     Dates: start: 20090220, end: 20090520
  3. CLOZAPINE [Suspect]
     Route: 048
     Dates: start: 20090220, end: 20090520
  4. CLOZAPINE [Suspect]
     Route: 048
     Dates: start: 20090220, end: 20090520
  5. DEPAKOTE [Concomitant]
     Route: 048
  6. ATIVAN [Concomitant]
     Route: 048
  7. ZYPREXA [Concomitant]
     Route: 048
  8. ASPIRIN [Concomitant]
  9. VENTOLIN [Concomitant]
  10. ZITHROMAX [Concomitant]
  11. ADVAIR DISKUS 100/50 [Concomitant]
  12. LEVOTHROID [Concomitant]
  13. KALETRA [Concomitant]
  14. MULTI-VITAMINS [Concomitant]
  15. LAXATIVES [Concomitant]
  16. TRUVADA [Concomitant]

REACTIONS (2)
  - GRANULOCYTOPENIA [None]
  - MYOCLONIC EPILEPSY [None]
